FAERS Safety Report 12412157 (Version 1)
Quarter: 2016Q2

REPORT INFORMATION
  Report Type: Spontaneous
  Country: GB (occurrence: GB)
  Receive Date: 20160527
  Receipt Date: 20160527
  Transmission Date: 20160815
  Serious: Yes (Death)
  Sender: FDA-Public Use
  Company Number: GB-CELGENEUS-GBR-2016053274

PATIENT
  Age: 54 Year
  Sex: Male

DRUGS (2)
  1. ENOXAPARIN [Concomitant]
     Active Substance: ENOXAPARIN
     Indication: PULMONARY EMBOLISM
     Route: 065
  2. REVLIMID [Suspect]
     Active Substance: LENALIDOMIDE
     Indication: DIFFUSE LARGE B-CELL LYMPHOMA
     Dosage: 25 MILLIGRAM
     Route: 048

REACTIONS (1)
  - Diffuse large B-cell lymphoma [Fatal]

NARRATIVE: CASE EVENT DATE: 201412
